FAERS Safety Report 16333217 (Version 3)
Quarter: 2019Q3

REPORT INFORMATION
  Report Type: Spontaneous
  Country: US (occurrence: US)
  Receive Date: 20190520
  Receipt Date: 20190822
  Transmission Date: 20191004
  Serious: Yes (Other)
  Sender: FDA-Public Use
  Company Number: US-PFIZER INC-2019209853

PATIENT
  Age: 71 Year
  Sex: Female

DRUGS (1)
  1. XELJANZ [Suspect]
     Active Substance: TOFACITINIB CITRATE
     Indication: COLITIS
     Dosage: 5 MG, UNK

REACTIONS (7)
  - Dementia [Unknown]
  - Aphasia [Unknown]
  - Impaired quality of life [Unknown]
  - Staring [Unknown]
  - Anaemia [Unknown]
  - Memory impairment [Unknown]
  - Impaired reasoning [Unknown]
